FAERS Safety Report 6978882-9 (Version None)
Quarter: 2010Q3

REPORT INFORMATION
  Report Type: 
  Country: None (occurrence: None)
  Receive Date: 20100913
  Receipt Date: 20100901
  Transmission Date: 20110219
  Serious: Yes (Hospitalization)
  Sender: FDA-Public Use
  Company Number: US-ELI_LILLY_AND_COMPANY-US201009001880

PATIENT
  Sex: Male
  Weight: 110 kg

DRUGS (10)
  1. PEMETREXED [Suspect]
     Indication: HEAD AND NECK CANCER
     Dosage: 500 MG/M2, OTHER
     Route: 042
     Dates: start: 20100819
  2. CETUXIMAB [Suspect]
     Indication: HEAD AND NECK CANCER
     Dosage: 400 MG/M2, OTHER
     Route: 042
     Dates: start: 20100819
  3. CETUXIMAB [Suspect]
     Dosage: 250 MG/M2, WEEKLY (1/W)
     Route: 042
  4. CARBOPLATIN [Suspect]
     Indication: HEAD AND NECK CANCER
     Dosage: 5 D/F, OTHER
     Route: 042
     Dates: start: 20100819
  5. VITAMIN B-12 [Concomitant]
     Dates: start: 20100813
  6. FOLIC ACID [Concomitant]
     Dates: start: 20100813
  7. ASPIRIN [Concomitant]
     Dates: start: 19800101
  8. ZOFRAN [Concomitant]
  9. COMPAZINE [Concomitant]
  10. CLINDAMYCIN [Concomitant]
     Indication: ACNE
     Route: 061
     Dates: start: 20100826

REACTIONS (4)
  - EPISTAXIS [None]
  - FEBRILE NEUTROPENIA [None]
  - NEUTROPHIL COUNT DECREASED [None]
  - PLATELET COUNT DECREASED [None]
